FAERS Safety Report 9417607 (Version 1)
Quarter: 2013Q3

REPORT INFORMATION
  Report Type: Spontaneous
  Country: US (occurrence: US)
  Receive Date: 20130724
  Receipt Date: 20130724
  Transmission Date: 20140515
  Serious: No
  Sender: FDA-Public Use
  Company Number: US-BRISTOL-MYERS SQUIBB COMPANY-19022003

PATIENT
  Age: 58 Year
  Sex: Female
  Weight: 169.16 kg

DRUGS (4)
  1. ELIQUIS [Suspect]
     Indication: ATRIAL FIBRILLATION
     Dates: start: 20130604
  2. METOPROLOL [Concomitant]
     Indication: HYPERTENSION
     Dosage: EVERY NIGHT.
  3. XYZAL [Concomitant]
  4. AZITHROMYCIN [Concomitant]

REACTIONS (1)
  - Pruritus [Unknown]
